FAERS Safety Report 5605416-3 (Version None)
Quarter: 2008Q1

REPORT INFORMATION
  Report Type: 
  Country: None (occurrence: None)
  Receive Date: 20080123
  Receipt Date: 20080110
  Transmission Date: 20080703
  Serious: Yes (Hospitalization)
  Sender: FDA-Public Use
  Company Number: 2007BI024476

PATIENT
  Age: 43 Year
  Sex: Female

DRUGS (1)
  1. AVONEX [Suspect]
     Indication: MULTIPLE SCLEROSIS
     Dosage: 30 UG; QW; IM
     Route: 030
     Dates: start: 20060616

REACTIONS (7)
  - CYSTOCELE [None]
  - DYSMENORRHOEA [None]
  - MENORRHAGIA [None]
  - RECTOCELE [None]
  - STRESS URINARY INCONTINENCE [None]
  - THROMBOSIS [None]
  - UTERINE LEIOMYOMA [None]
